FAERS Safety Report 20307201 (Version 1)
Quarter: 2022Q1

REPORT INFORMATION
  Report Type: Spontaneous
  Country: FR (occurrence: FR)
  Receive Date: 20220107
  Receipt Date: 20220107
  Transmission Date: 20220424
  Serious: Yes (Hospitalization)
  Sender: FDA-Public Use
  Company Number: FR-AFSSAPS-LY202113236

PATIENT
  Age: 69 Year
  Sex: Male
  Weight: 101 kg

DRUGS (7)
  1. PAROXETINE [Suspect]
     Active Substance: PAROXETINE
     Indication: Product used for unknown indication
     Dosage: UNK
     Route: 065
  2. ALFUZOSIN HYDROCHLORIDE [Concomitant]
     Active Substance: ALFUZOSIN HYDROCHLORIDE
     Indication: Product used for unknown indication
     Dosage: UNK
     Route: 065
  3. INSULIN NOS [Concomitant]
     Active Substance: INSULIN NOS
     Indication: Product used for unknown indication
     Dosage: UNK
     Route: 065
  4. CEFEPIME [Concomitant]
     Active Substance: CEFEPIME HYDROCHLORIDE
     Indication: Product used for unknown indication
     Dosage: UNK
     Route: 065
  5. MONOPROST 50 micrograms / ml, eye drops, solution in single-dose conta [Concomitant]
     Indication: Product used for unknown indication
     Dosage: UNK
     Route: 065
  6. ENOXAPARINE CRUSIA 4000 IU (40 mg) / 0.4 mL, solution for injection in [Concomitant]
     Indication: Product used for unknown indication
     Dosage: UNK
     Route: 065
  7. OPHTIM 0.50 PERCENT (1.25 mg / 0.25 ml), eye drops in single-dose cont [Concomitant]
     Indication: Product used for unknown indication
     Dosage: UNK
     Route: 065

REACTIONS (1)
  - Neutropenia [Recovered/Resolved]

NARRATIVE: CASE EVENT DATE: 20210930
